FAERS Safety Report 11820899 (Version 1)
Quarter: 2015Q4

REPORT INFORMATION
  Report Type: Spontaneous
  Country: US (occurrence: US)
  Receive Date: 20151210
  Receipt Date: 20151210
  Transmission Date: 20160305
  Serious: No
  Sender: FDA-Public Use
  Company Number: US-JNJFOC-20150510161

PATIENT
  Age: 65 Year
  Sex: Female

DRUGS (5)
  1. IMBRUVICA [Suspect]
     Active Substance: IBRUTINIB
     Indication: CHRONIC LYMPHOCYTIC LEUKAEMIA
     Route: 048
  2. IMBRUVICA [Suspect]
     Active Substance: IBRUTINIB
     Indication: CHRONIC LYMPHOCYTIC LEUKAEMIA
     Route: 048
     Dates: start: 20150223
  3. COENZYME Q10 [Concomitant]
     Active Substance: UBIDECARENONE
  4. FISH OIL [Concomitant]
     Active Substance: FISH OIL
  5. NALTREXONE [Concomitant]
     Active Substance: NALTREXONE

REACTIONS (3)
  - Headache [Unknown]
  - Dizziness [Not Recovered/Not Resolved]
  - Feeling hot [Unknown]

NARRATIVE: CASE EVENT DATE: 201502
